FAERS Safety Report 7657321-9 (Version None)
Quarter: 2011Q3

REPORT INFORMATION
  Report Type: 
  Country: None (occurrence: None)
  Receive Date: 20110804
  Receipt Date: 20110727
  Transmission Date: 20111222
  Serious: Yes (Other)
  Sender: FDA-Public Use
  Company Number: PHHY2011US68069

PATIENT
  Age: 63 Year
  Sex: Female

DRUGS (5)
  1. CHEMOTHERAPEUTICS,OTHER [Concomitant]
     Dosage: UNK UKN, UNK
  2. MELATONIN [Concomitant]
  3. ZOMETA [Suspect]
     Dosage: 04 MG, ONCE EVERY 03 WEEKS
  4. STATINS [Concomitant]
     Indication: BLOOD CHOLESTEROL INCREASED
     Dosage: UNK UKN, UNK
  5. HERCEPTIN [Concomitant]

REACTIONS (2)
  - OSTEONECROSIS OF JAW [None]
  - JAW DISORDER [None]
